FAERS Safety Report 5085881-3 (Version None)
Quarter: 2006Q3

REPORT INFORMATION
  Report Type: 
  Country: None (occurrence: None)
  Receive Date: 20060817
  Receipt Date: 20060807
  Transmission Date: 20061208
  Serious: Yes (Other)
  Sender: FDA-Public Use
  Company Number: HQWYE588725AUG04

PATIENT
  Age: 58 Year
  Sex: Female
  Weight: 74.91 kg

DRUGS (9)
  1. PREMPRO [Suspect]
     Indication: HOT FLUSH
     Dosage: ORAL
     Route: 048
     Dates: start: 19990101, end: 20000201
  2. PREMPRO [Suspect]
     Indication: NIGHT SWEATS
     Dosage: ORAL
     Route: 048
     Dates: start: 19990101, end: 20000201
  3. ESTRATEST [Suspect]
     Indication: HOT FLUSH
     Dosage: ORAL
     Route: 048
     Dates: start: 19940101, end: 19990101
  4. ESTRATEST [Suspect]
     Indication: NIGHT SWEATS
     Dosage: ORAL
     Route: 048
     Dates: start: 19940101, end: 19990101
  5. PREMARIN [Suspect]
     Indication: HOT FLUSH
     Dosage: ORAL
     Route: 048
     Dates: start: 19931001, end: 19940101
  6. PREMARIN [Suspect]
     Indication: NIGHT SWEATS
     Dosage: ORAL
     Route: 048
     Dates: start: 19931001, end: 19940101
  7. PROVERA [Suspect]
     Indication: HOT FLUSH
     Dosage: ORAL
     Route: 048
     Dates: start: 19931001, end: 19940101
  8. PROVERA [Suspect]
     Indication: NIGHT SWEATS
     Dosage: ORAL
     Route: 048
     Dates: start: 19931001, end: 19940101
  9. ASPIRIN [Concomitant]

REACTIONS (6)
  - ADENOCARCINOMA [None]
  - ANXIETY [None]
  - BREAST CANCER IN SITU [None]
  - BREAST CANCER METASTATIC [None]
  - DEPRESSION [None]
  - METASTASES TO LYMPH NODES [None]
